FAERS Safety Report 12468955 (Version 1)
Quarter: 2016Q2

REPORT INFORMATION
  Report Type: Spontaneous
  Country: NL (occurrence: NL)
  Receive Date: 20160615
  Receipt Date: 20160615
  Transmission Date: 20160815
  Serious: Yes (Other)
  Sender: FDA-Public Use
  Company Number: NL-TEVA-668597ACC

PATIENT
  Age: 70 Year
  Sex: Female
  Weight: 79 kg

DRUGS (7)
  1. METOPROLOL TABLET MGA  50MG (SUCCINAAT) [Concomitant]
     Dosage: DOSE NOT KNOWN
     Route: 048
  2. HYDROCHLOORTHIAZIDE PCH TABLET 25MG [Concomitant]
     Dosage: DOSE NOT KNOWN
     Route: 048
  3. TAMOXIFEN TABLET 20 MG [Suspect]
     Active Substance: TAMOXIFEN
     Indication: BREAST CANCER
     Dosage: ONCE DAILY ONE PIECE
     Route: 048
     Dates: start: 20160229
  4. FLUTICASONE PROPIONATE\SALMETEROL XINAFOATE [Concomitant]
     Active Substance: FLUTICASONE PROPIONATE\SALMETEROL XINAFOATE
     Dosage: DOSE NOT KNOWN
     Route: 048
  5. ENALAPRIL TABLET 10MG [Concomitant]
     Active Substance: ENALAPRIL
     Dosage: DOSE NOT KNOWN
     Route: 048
  6. OMEPRAZOL CAPSULE MSR 20MG [Concomitant]
     Active Substance: OMEPRAZOLE
     Dosage: DOSE NOT KNOWN
     Route: 048
  7. VENTOLIN DISKUS INHPDR 200MCG 60DO [Concomitant]
     Dosage: DOSE NOT KNOWN
     Route: 055

REACTIONS (3)
  - Depressed mood [Recovered/Resolved]
  - Suicidal ideation [Recovered/Resolved]
  - Vomiting [Recovered/Resolved]

NARRATIVE: CASE EVENT DATE: 201603
